FAERS Safety Report 8154183-0 (Version None)
Quarter: 2012Q1

REPORT INFORMATION
  Report Type: 
  Country: None (occurrence: None)
  Receive Date: 20120215
  Receipt Date: 20120209
  Transmission Date: 20120608
  Serious: Yes (Death)
  Sender: FDA-Public Use
  Company Number: ANI_2011_927169

PATIENT
  Age: 52 Year
  Sex: Female

DRUGS (8)
  1. GABAPENTIN [Suspect]
  2. AMITRIPTYLINE HCL [Suspect]
  3. MORPHINE [Suspect]
  4. PROPRANOLOL [Suspect]
  5. GEMFIBROZIL [Suspect]
  6. ETHANOL [Suspect]
  7. METOCLOPRAMIDE [Suspect]
  8. CYCLOBENZAPRINE [Suspect]

REACTIONS (2)
  - TOXICITY TO VARIOUS AGENTS [None]
  - COMPLETED SUICIDE [None]
